FAERS Safety Report 10196157 (Version 1)
Quarter: 2014Q2

REPORT INFORMATION
  Report Type: Spontaneous
  Country: US (occurrence: US)
  Receive Date: 20140527
  Receipt Date: 20140527
  Transmission Date: 20141212
  Serious: No
  Sender: FDA-Public Use
  Company Number: US-BAYER-2014-077390

PATIENT
  Age: 53 Year
  Sex: Female
  Weight: 56.69 kg

DRUGS (3)
  1. CLIMARA [Suspect]
     Indication: MENOPAUSE
     Dosage: 0.1 MG/D, UNK
     Route: 062
     Dates: start: 2013
  2. MEDROXYPROGESTERONE [Concomitant]
     Dosage: 2.5 MG, QD
     Dates: start: 201405
  3. PANTOPRAZOLE [Concomitant]
     Indication: HYPERCHLORHYDRIA
     Dosage: 40 MG, QD
     Dates: start: 201401

REACTIONS (3)
  - Application site vesicles [None]
  - Product adhesion issue [None]
  - Pruritus [None]
